FAERS Safety Report 4759571-8 (Version None)
Quarter: 2005Q3

REPORT INFORMATION
  Report Type: 
  Country: None (occurrence: None)
  Receive Date: 20050831
  Receipt Date: 20050816
  Transmission Date: 20060218
  Serious: Yes (Death)
  Sender: FDA-Public Use
  Company Number: S05-USA-03967-01

PATIENT
  Age: 53 Year
  Sex: Male

DRUGS (2)
  1. LEXAPRO [Suspect]
     Indication: ANXIETY
     Dosage: UNK
     Route: 065
     Dates: start: 20021205, end: 20021222
  2. EFFEXOR [Suspect]
     Indication: ANXIETY
     Dosage: UNK
     Route: 065
     Dates: start: 20021224, end: 20021230

REACTIONS (9)
  - ANXIETY [None]
  - COMPLETED SUICIDE [None]
  - CONDITION AGGRAVATED [None]
  - DRUG INEFFECTIVE [None]
  - DRUG WITHDRAWAL SYNDROME [None]
  - INSOMNIA [None]
  - NERVOUSNESS [None]
  - RESTLESSNESS [None]
  - TREMOR [None]
